FAERS Safety Report 7616705-5 (Version None)
Quarter: 2011Q3

REPORT INFORMATION
  Report Type: 
  Country: None (occurrence: None)
  Receive Date: 20110718
  Receipt Date: 20110711
  Transmission Date: 20111222
  Serious: Yes (Other)
  Sender: FDA-Public Use
  Company Number: DE-BRISTOL-MYERS SQUIBB COMPANY-15895394

PATIENT
  Age: 71 Year
  Sex: Female

DRUGS (4)
  1. ONGLYZA [Suspect]
     Dates: start: 20110705
  2. OMEPRAZOLE [Concomitant]
  3. LEVOTHYROXINE SODIUM [Concomitant]
  4. MICARDIS [Concomitant]

REACTIONS (1)
  - ANGIOEDEMA [None]
